FAERS Safety Report 10961811 (Version 3)
Quarter: 2015Q2

REPORT INFORMATION
  Report Type: Spontaneous
  Country: US (occurrence: US)
  Receive Date: 20150327
  Receipt Date: 20150505
  Transmission Date: 20150821
  Serious: Yes (Hospitalization, Other)
  Sender: FDA-Public Use
  Company Number: US-JAZZ-2013-230

PATIENT
  Age: 63 Year
  Sex: Female

DRUGS (9)
  1. PRIALT [Suspect]
     Active Substance: ZICONOTIDE ACETATE
     Dosage: 0.23 MCG, QH
     Route: 037
  2. REGLAN [Concomitant]
     Active Substance: METOCLOPRAMIDE HYDROCHLORIDE
  3. PRIALT [Suspect]
     Active Substance: ZICONOTIDE ACETATE
     Dosage: 0.245 MCG, QH
     Route: 037
  4. BENTYL [Concomitant]
     Active Substance: DICYCLOMINE HYDROCHLORIDE
  5. PRIALT [Suspect]
     Active Substance: ZICONOTIDE ACETATE
     Indication: SPINAL PAIN
     Dosage: UNK ?G, QH
     Route: 037
  6. BACLOFEN. [Suspect]
     Active Substance: BACLOFEN
     Indication: SPINAL PAIN
     Dosage: UNK ?G, QH
     Route: 037
  7. FENTANYL. [Suspect]
     Active Substance: FENTANYL
     Indication: SPINAL PAIN
     Dosage: UNK ?G, QH
     Route: 037
  8. PRIALT [Suspect]
     Active Substance: ZICONOTIDE ACETATE
     Dosage: 0.116 MCG, QH
  9. BUPIVACAINE HYDROCHLORIDE. [Suspect]
     Active Substance: BUPIVACAINE HYDROCHLORIDE
     Indication: SPINAL PAIN
     Dosage: UNK MG, QH
     Route: 037

REACTIONS (19)
  - Stress [Recovered/Resolved]
  - Aphasia [Recovered/Resolved]
  - Coma [Recovered/Resolved]
  - Dysgeusia [Unknown]
  - Hallucination [Recovered/Resolved]
  - Groin pain [Recovered/Resolved]
  - Affect lability [Recovered/Resolved]
  - Unevaluable event [Recovered/Resolved]
  - Pelvic pain [Recovered/Resolved]
  - Sciatica [Recovered/Resolved]
  - Irritability [Recovered/Resolved]
  - Nausea [Recovered/Resolved]
  - Seizure [Recovered/Resolved]
  - Incoherent [Recovered/Resolved]
  - Malaise [Recovered/Resolved]
  - Swelling [Recovered/Resolved]
  - Mental impairment [Recovered/Resolved]
  - Drug ineffective [Recovered/Resolved]
  - Device issue [Recovered/Resolved]

NARRATIVE: CASE EVENT DATE: 2013
